FAERS Safety Report 17745403 (Version 1)
Quarter: 2020Q2

REPORT INFORMATION
  Report Type: Spontaneous
  Country: CN (occurrence: CN)
  Receive Date: 20200505
  Receipt Date: 20200505
  Transmission Date: 20200714
  Serious: Yes (Hospitalization, Other)
  Sender: FDA-Public Use
  Company Number: CN-BAXTER-2020BAX009432

PATIENT
  Age: 15 Year
  Sex: Female
  Weight: 44 kg

DRUGS (11)
  1. DOXORUBICIN HYDROCHLORIDE LIPOSOME [Suspect]
     Active Substance: DOXORUBICIN HYDROCHLORIDE
     Indication: EWING^S SARCOMA
     Route: 065
  2. HOLOXAN [Suspect]
     Active Substance: IFOSFAMIDE
     Dosage: DOSE RE-INTRODUCED, IFOSFAMIDE+ NS
     Route: 041
     Dates: start: 202004
  3. 0.9% SODIUM CHLORIDE INJECTION [Suspect]
     Active Substance: SODIUM CHLORIDE
     Indication: MEDICATION DILUTION
     Dosage: NS+ HALOXAN 2.4 G, DAY 1 TO 5
     Route: 041
     Dates: start: 20200329, end: 20200402
  4. ETOPOSIDE. [Suspect]
     Active Substance: ETOPOSIDE
     Dosage: DOSE RE-INTRODUCED, ETOPOSIDE+ NS
     Route: 041
     Dates: start: 202004
  5. VINDESINE SULFATE [Suspect]
     Active Substance: VINDESINE SULFATE
     Indication: EWING^S SARCOMA
     Route: 065
  6. ETOPOSIDE. [Suspect]
     Active Substance: ETOPOSIDE
     Indication: EWING^S SARCOMA
     Dosage: ETOPOSIDE + NS 250 ML, DAY 1 TO 5
     Route: 041
     Dates: start: 20200329, end: 20200402
  7. HOLOXAN [Suspect]
     Active Substance: IFOSFAMIDE
     Indication: EWING^S SARCOMA
     Dosage: HALOXAN + NS 500ML, DAY 1 TO 5
     Route: 041
     Dates: start: 20200329, end: 20200402
  8. ENDOXAN [Suspect]
     Active Substance: CYCLOPHOSPHAMIDE
     Indication: EWING^S SARCOMA
     Route: 065
  9. 0.9% SODIUM CHLORIDE INJECTION [Suspect]
     Active Substance: SODIUM CHLORIDE
     Dosage: DOSE RE-INTRODUCED, NS+ ETOPOSIDE
     Route: 041
     Dates: start: 202004
  10. 0.9% SODIUM CHLORIDE INJECTION [Suspect]
     Active Substance: SODIUM CHLORIDE
     Dosage: NS + ETOPOSIDE 133 MG, DAY 1 TO 5
     Route: 041
     Dates: start: 20200329, end: 20200402
  11. 0.9% SODIUM CHLORIDE INJECTION [Suspect]
     Active Substance: SODIUM CHLORIDE
     Dosage: DOSE RE-INTRODUCED, NS+ IFOSFAMIDE
     Route: 041
     Dates: start: 202004

REACTIONS (2)
  - Bone marrow failure [Recovered/Resolved]
  - Bone marrow failure [Recovering/Resolving]

NARRATIVE: CASE EVENT DATE: 20200406
